FAERS Safety Report 18489248 (Version 1)
Quarter: 2020Q4

REPORT INFORMATION
  Report Type: Spontaneous
  Country: DE (occurrence: DE)
  Receive Date: 20201111
  Receipt Date: 20201111
  Transmission Date: 20210114
  Serious: Yes (Other)
  Sender: FDA-Public Use
  Company Number: DE-JNJFOC-20201106060

PATIENT
  Age: 70 Year
  Sex: Male
  Weight: 66 kg

DRUGS (18)
  1. BRENTUXIMAB VEDOTIN [Suspect]
     Active Substance: BRENTUXIMAB VEDOTIN
     Indication: DIFFUSE LARGE B-CELL LYMPHOMA
     Dosage: 5TH LINE TREATMENT, 4 CYCLES
     Route: 065
     Dates: start: 201905, end: 201909
  2. CISPLATIN. [Suspect]
     Active Substance: CISPLATIN
     Indication: DIFFUSE LARGE B-CELL LYMPHOMA
     Dosage: 2ND LINE THERAPY ACCORDING TO R-GDP REGIMEN, 4 CYCLES
     Route: 065
     Dates: start: 201512, end: 201602
  3. CYCLOPHOSPHAMIDE. [Suspect]
     Active Substance: CYCLOPHOSPHAMIDE
     Indication: DIFFUSE LARGE B-CELL LYMPHOMA
     Dosage: 1ST LINE THERAPY ACCORDING TO R-CHOP REGIMEN, 6 CYCLES, AND 2 CYCLES OF RITUXIMAB AS MONOTHERAPY
     Route: 065
     Dates: start: 200910, end: 201002
  4. DEXAMETHASONE. [Suspect]
     Active Substance: DEXAMETHASONE
     Indication: DIFFUSE LARGE B-CELL LYMPHOMA
     Dosage: 2ND LINE THERAPY ACCORDING TO R-GDP REGIMEN, 4 CYCLES
     Route: 065
     Dates: start: 201512, end: 201602
  5. IFOSFAMIDE. [Suspect]
     Active Substance: IFOSFAMIDE
     Indication: DIFFUSE LARGE B-CELL LYMPHOMA
     Dosage: 4TH CYCLE OF TREATMENT ACCORDING TO R-IMVP-16 REGIMEN, 5 CYCLES (IFOSFAMIDE 75%)
     Route: 065
     Dates: start: 201811, end: 201902
  6. VINCRISTINE [Suspect]
     Active Substance: VINCRISTINE
     Indication: DIFFUSE LARGE B-CELL LYMPHOMA
     Dosage: 1ST LINE THERAPY ACCORDING TO R-CHOP REGIMEN, 6 CYCLES, AND 2 CYCLES OF RITUXIMAB ASMONOTHERAPY
     Route: 065
     Dates: start: 200910, end: 201002
  7. GEMCITABINE. [Suspect]
     Active Substance: GEMCITABINE
     Indication: DIFFUSE LARGE B-CELL LYMPHOMA
     Route: 065
     Dates: start: 201512, end: 201602
  8. METHOTREXATE. [Suspect]
     Active Substance: METHOTREXATE
     Indication: DIFFUSE LARGE B-CELL LYMPHOMA
     Dosage: 4TH CYCLE OF TREATMENT ACCORDING TO R-IMVP-16 REGIMEN, 5 CYCLES (IFOSFAMIDE 75%)
     Route: 065
     Dates: start: 201811, end: 201902
  9. PREDNISONE. [Suspect]
     Active Substance: PREDNISONE
     Indication: DIFFUSE LARGE B-CELL LYMPHOMA
     Dosage: 1ST LINE THERAPY ACCORDING TO R-CHOP REGIMEN, 6 CYCLES, AND 2 CYCLES OF RITUXIMAB ASMONOTHERAPY
     Route: 065
     Dates: start: 201002, end: 201002
  10. DOXORUBICIN HYDROCHLORIDE. [Suspect]
     Active Substance: DOXORUBICIN HYDROCHLORIDE
     Indication: DIFFUSE LARGE B-CELL LYMPHOMA
     Dosage: 1ST LINE THERAPY ACCORDING TO R-CHOP REGIMEN, 6 CYCLES, AND 2 CYCLES OF RITUXIMAB AS MONOTHERAPY
     Route: 065
     Dates: start: 200910, end: 201002
  11. MABTHERA [Suspect]
     Active Substance: RITUXIMAB
     Dosage: 1ST LINE THERAPY ACCORDING TO R-CHOP REGIMEN, 6 CYCLES, AND 2 CYCLES OF RITUXIMAB AS MONOTHERAPY
     Route: 065
     Dates: start: 200910, end: 201002
  12. MABTHERA [Suspect]
     Active Substance: RITUXIMAB
     Dosage: 2ND LINE THERAPY ACCORDING TO R-GDP REGIMEN, 4 CYCLES
     Route: 065
     Dates: start: 201512, end: 201602
  13. VP-16 [Suspect]
     Active Substance: ETOPOSIDE
     Indication: DIFFUSE LARGE B-CELL LYMPHOMA
     Route: 065
     Dates: start: 201811, end: 201902
  14. BICNU [Suspect]
     Active Substance: CARMUSTINE
     Indication: DIFFUSE LARGE B-CELL LYMPHOMA
     Dosage: 3RD LINE THERAPY ACCORDING TO HD BEAM REGIMEN WITH AUTO SCT, 1 CYCLE
     Route: 065
     Dates: start: 201604
  15. ETOPOSIDE. [Suspect]
     Active Substance: ETOPOSIDE
     Indication: DIFFUSE LARGE B-CELL LYMPHOMA
     Dosage: 3RD LINE THERAPY ACCORDING TO HD BEAM REGIMEN WITH AUTO SCT, 1 CYCLE
     Route: 065
     Dates: start: 201604
  16. MABTHERA [Suspect]
     Active Substance: RITUXIMAB
     Indication: DIFFUSE LARGE B-CELL LYMPHOMA
     Dosage: 4TH CYCLE OF TREATMENT ACCORDING TO R-IMVP-16 REGIMEN, 5 CYCLES
     Route: 065
     Dates: start: 201811, end: 201902
  17. CYTARABINE. [Suspect]
     Active Substance: CYTARABINE
     Indication: DIFFUSE LARGE B-CELL LYMPHOMA
     Dosage: 3RD LINE THERAPY ACCORDING TO HD BEAM REGIMEN WITH AUTO SCT, 1 CYCLE
     Route: 065
     Dates: start: 201604
  18. MELPHALAN. [Suspect]
     Active Substance: MELPHALAN
     Indication: DIFFUSE LARGE B-CELL LYMPHOMA
     Dosage: 3RD LINE THERAPY ACCORDING TO HD BEAM REGIMEN WITH AUTO SCT, 1 CYCLE
     Route: 065
     Dates: start: 201604

REACTIONS (4)
  - Off label use [Unknown]
  - Adenocarcinoma gastric [Unknown]
  - Pancytopenia [Unknown]
  - Product use in unapproved indication [Unknown]

NARRATIVE: CASE EVENT DATE: 200910
